FAERS Safety Report 18280147 (Version 1)
Quarter: 2020Q3

REPORT INFORMATION
  Report Type: Other
  Country: CA (occurrence: CA)
  Receive Date: 20200918
  Receipt Date: 20200918
  Transmission Date: 20201103
  Serious: Yes (Hospitalization)
  Sender: FDA-Public Use
  Company Number: CA-APOTEX-2020AP017816

PATIENT
  Age: 15 Year
  Sex: Female

DRUGS (4)
  1. COLACE [Suspect]
     Active Substance: DOCUSATE SODIUM
     Indication: OVERDOSE
     Dosage: UNK
     Route: 065
  2. IBUPROFEN. [Suspect]
     Active Substance: IBUPROFEN
     Indication: OVERDOSE
     Dosage: 4000 MILLIGRAM
     Route: 065
  3. ACETAMINOPHEN. [Suspect]
     Active Substance: ACETAMINOPHEN
     Indication: OVERDOSE
     Dosage: 5000 MILLIGRAM
     Route: 065
  4. GRAVOL GINGER NIGHTTIME [Suspect]
     Active Substance: GINGER\MELATONIN
     Indication: OVERDOSE
     Dosage: 20 DOSAGE FORM
     Route: 065

REACTIONS (4)
  - Intentional overdose [Recovered/Resolved]
  - Agitation [Recovered/Resolved]
  - Somnolence [Recovered/Resolved]
  - Blood pressure increased [Recovered/Resolved]
